FAERS Safety Report 4611034-6 (Version None)
Quarter: 2005Q1

REPORT INFORMATION
  Report Type: 
  Country: None (occurrence: None)
  Receive Date: 20050317
  Receipt Date: 20050228
  Transmission Date: 20050727
  Serious: Yes (Disabling)
  Sender: FDA-Public Use
  Company Number: 200511826GDDC

PATIENT
  Age: 63 Year
  Sex: Male

DRUGS (2)
  1. KETEK [Suspect]
     Indication: SINUSITIS
     Route: 048
     Dates: start: 20050222, end: 20050226
  2. AMPICILLIN [Concomitant]
     Indication: INFECTION

REACTIONS (4)
  - ACTIVITIES OF DAILY LIVING IMPAIRED [None]
  - BRAIN NEOPLASM [None]
  - DIPLOPIA [None]
  - EYE PAIN [None]
